FAERS Safety Report 24665925 (Version 1)
Quarter: 2024Q4

REPORT INFORMATION
  Report Type: Spontaneous
  Country: US (occurrence: US)
  Receive Date: 20241126
  Receipt Date: 20241126
  Transmission Date: 20250114
  Serious: Yes (Other)
  Sender: TEVA
  Company Number: US-TEVA-VS-3268153

PATIENT
  Age: 77 Year
  Sex: Male

DRUGS (6)
  1. NALTREXONE [Suspect]
     Active Substance: NALTREXONE
     Indication: Pruritus
     Route: 065
  2. UPADACITINIB [Suspect]
     Active Substance: UPADACITINIB
     Indication: Pruritus
     Route: 065
  3. UPADACITINIB [Suspect]
     Active Substance: UPADACITINIB
     Indication: Pruritus
     Route: 065
  4. PAROXETINE [Suspect]
     Active Substance: PAROXETINE
     Indication: Pruritus
     Route: 065
  5. IVERMECTIN [Suspect]
     Active Substance: IVERMECTIN
     Indication: Pruritus
     Route: 065
  6. RITUXIMAB [Suspect]
     Active Substance: RITUXIMAB
     Indication: Pruritus
     Route: 065

REACTIONS (2)
  - Drug ineffective [Unknown]
  - Cytopenia [Recovering/Resolving]
